FAERS Safety Report 22825203 (Version 2)
Quarter: 2023Q4

REPORT INFORMATION
  Report Type: Spontaneous
  Country: CA (occurrence: CA)
  Receive Date: 20230816
  Receipt Date: 20231117
  Transmission Date: 20240110
  Serious: Yes (Other)
  Sender: FDA-Public Use
  Company Number: CA-TAKEDA-2023TUS078629

PATIENT
  Age: 5 Year
  Sex: Male

DRUGS (7)
  1. GAMMAGARD LIQUID [Suspect]
     Active Substance: HUMAN IMMUNOGLOBULIN G
     Indication: Kawasaki^s disease
     Dosage: 5 GRAM
     Route: 042
     Dates: start: 20220613
  2. GAMMAGARD LIQUID [Suspect]
     Active Substance: HUMAN IMMUNOGLOBULIN G
     Dosage: 10 GRAM
     Route: 042
     Dates: start: 20220613
  3. GAMMAGARD LIQUID [Suspect]
     Active Substance: HUMAN IMMUNOGLOBULIN G
     Dosage: 20 GRAM
     Route: 042
     Dates: start: 20220613
  4. GAMMAGARD LIQUID [Suspect]
     Active Substance: HUMAN IMMUNOGLOBULIN G
     Dosage: 2.5 GRAM
     Route: 042
     Dates: start: 20220613
  5. GAMMAGARD LIQUID [Suspect]
     Active Substance: HUMAN IMMUNOGLOBULIN G
     Dosage: 30 GRAM
     Route: 042
     Dates: start: 20220615
  6. GAMMAGARD LIQUID [Suspect]
     Active Substance: HUMAN IMMUNOGLOBULIN G
     Dosage: 5 GRAM
     Route: 042
     Dates: start: 20220615
  7. GAMMAGARD LIQUID [Suspect]
     Active Substance: HUMAN IMMUNOGLOBULIN G
     Dosage: 2.5 GRAM
     Route: 042
     Dates: start: 20220615

REACTIONS (12)
  - Arachnoid cyst [Unknown]
  - Blood lactate dehydrogenase increased [Unknown]
  - Delirium tremens [Unknown]
  - General physical health deterioration [Unknown]
  - Haptoglobin decreased [Unknown]
  - Meningitis [Unknown]
  - Pleural effusion [Unknown]
  - Reticulocyte count increased [Unknown]
  - Chills [Unknown]
  - Anaemia [Unknown]
  - Epistaxis [Unknown]
  - Pyrexia [Unknown]
